FAERS Safety Report 8110612-X (Version None)
Quarter: 2012Q1

REPORT INFORMATION
  Report Type: 
  Country: None (occurrence: None)
  Receive Date: 20120203
  Receipt Date: 20120131
  Transmission Date: 20120608
  Serious: No
  Sender: FDA-Public Use
  Company Number: US-PFIZER INC-2012026825

PATIENT
  Sex: Female
  Weight: 65.76 kg

DRUGS (4)
  1. CELEBREX [Suspect]
     Indication: ARTHRITIS
     Dosage: 200 MG, 2X/DAY
     Route: 048
     Dates: start: 20111001
  2. PROTONIX [Suspect]
     Indication: GASTROOESOPHAGEAL REFLUX DISEASE
     Dosage: 40 MG, 1X/DAY
     Route: 048
     Dates: end: 20120101
  3. CELEBREX [Suspect]
     Indication: INTERVERTEBRAL DISC DEGENERATION
  4. LOPRESSOR [Concomitant]
     Dosage: UNK

REACTIONS (1)
  - SINUSITIS [None]
